FAERS Safety Report 9519141 (Version 1)
Quarter: 2013Q3

REPORT INFORMATION
  Report Type: Spontaneous
  Country: US (occurrence: None)
  Receive Date: 20130911
  Receipt Date: 20130911
  Transmission Date: 20140515
  Serious: Yes (Hospitalization)
  Sender: FDA-Public Use
  Company Number: None

PATIENT
  Age: 80 Year
  Sex: Female
  Weight: 56.7 kg

DRUGS (1)
  1. VANCOMYCIN [Suspect]
     Indication: BACTERIAL INFECTION
     Dosage: IV INTO A VEIN
     Route: 042
     Dates: start: 20130815, end: 20130817

REACTIONS (4)
  - Renal failure [None]
  - Fungal infection [None]
  - Adverse event [None]
  - Staphylococcal infection [None]
